FAERS Safety Report 9644435 (Version 2)
Quarter: 2013Q4

REPORT INFORMATION
  Report Type: Spontaneous
  Country: US (occurrence: US)
  Receive Date: 20131025
  Receipt Date: 20131211
  Transmission Date: 20140711
  Serious: No
  Sender: FDA-Public Use
  Company Number: US-009507513-1310USA008852

PATIENT
  Sex: Male

DRUGS (3)
  1. SINGULAIR [Suspect]
     Indication: HYPERSENSITIVITY
     Dosage: LATE SPRING IN 2013, QD
     Route: 048
     Dates: start: 2013, end: 20130927
  2. ZYRTEC [Concomitant]
     Dosage: UNK
     Dates: end: 2013
  3. FLONASE [Concomitant]

REACTIONS (8)
  - Suicidal ideation [Recovering/Resolving]
  - Homicidal ideation [Recovering/Resolving]
  - Acute stress disorder [Recovering/Resolving]
  - Unevaluable event [Recovering/Resolving]
  - Anger [Recovering/Resolving]
  - Anxiety [Recovering/Resolving]
  - Aggression [Recovering/Resolving]
  - Abnormal dreams [Recovering/Resolving]
